FAERS Safety Report 19428102 (Version 1)
Quarter: 2021Q2

REPORT INFORMATION
  Report Type: Spontaneous
  Country: US (occurrence: US)
  Receive Date: 20210617
  Receipt Date: 20210617
  Transmission Date: 20210717
  Serious: No
  Sender: FDA-Public Use
  Company Number: US-ORGANON-O2106USA001198

PATIENT
  Age: 21 Year
  Sex: Female
  Weight: 2.3 kg

DRUGS (1)
  1. NEXPLANON [Suspect]
     Active Substance: ETONOGESTREL
     Dosage: 1 DOSAGE FORM (IMPLANT), THREE YEARS
     Route: 059
     Dates: start: 20190625

REACTIONS (2)
  - No adverse event [Unknown]
  - Device kink [Unknown]

NARRATIVE: CASE EVENT DATE: 20210609
